FAERS Safety Report 9679723 (Version 1)
Quarter: 2013Q4

REPORT INFORMATION
  Report Type: Spontaneous
  Country: US (occurrence: US)
  Receive Date: 20131109
  Receipt Date: 20131109
  Transmission Date: 20140711
  Serious: No
  Sender: FDA-Public Use
  Company Number: US-BAXTER-2012BAX027459

PATIENT
  Sex: Female

DRUGS (2)
  1. DIANEAL PD2 [Suspect]
     Route: 033
  2. DIANEAL PD2 (ULTRABAG) [Suspect]
     Route: 033

REACTIONS (1)
  - Procedural pain [Unknown]
